FAERS Safety Report 8241351-2 (Version None)
Quarter: 2012Q1

REPORT INFORMATION
  Report Type: 
  Country: None (occurrence: None)
  Receive Date: 20120328
  Receipt Date: 20120321
  Transmission Date: 20120608
  Serious: Yes (Other)
  Sender: FDA-Public Use
  Company Number: PHHY2012ES024917

PATIENT
  Age: 23 Year
  Sex: Female

DRUGS (2)
  1. METAMIZOLE [Suspect]
     Indication: PYELONEPHRITIS ACUTE
     Dosage: 2 G, Q8H
     Route: 042
  2. AMOXICILLIN AND CLAVULANATE POTASSIUM [Suspect]

REACTIONS (4)
  - MATERNAL EXPOSURE DURING PREGNANCY [None]
  - OLIGOHYDRAMNIOS [None]
  - SYNCOPE [None]
  - PREMATURE DELIVERY [None]
